FAERS Safety Report 8097707-4 (Version None)
Quarter: 2012Q1

REPORT INFORMATION
  Report Type: 
  Country: None (occurrence: None)
  Receive Date: 20120128
  Receipt Date: 20110712
  Transmission Date: 20120608
  Serious: No
  Sender: FDA-Public Use
  Company Number: US-ABBOTT-11P-163-0838967-00

PATIENT
  Age: 63 Year
  Sex: Female

DRUGS (7)
  1. ATENOLOL [Concomitant]
     Indication: SUPRAVENTRICULAR TACHYCARDIA
     Dates: start: 20080101
  2. OMEPRAZOLE [Concomitant]
     Indication: GASTROOESOPHAGEAL REFLUX DISEASE
     Dosage: 1 - 2 PILLS DAILY PRN
  3. HUMIRA [Suspect]
     Indication: PSORIASIS
     Route: 058
     Dates: start: 20110301
  4. LISINOPRIL [Concomitant]
     Indication: HYPERTENSION
  5. EQUATE BRAND ALLERGY MEDICATION [Concomitant]
     Indication: ALLERGIC SINUSITIS
     Dosage: 1 - 2 PILLS DAILY PRN
  6. ASPIRIN [Concomitant]
     Indication: PRODUCT USED FOR UNKNOWN INDICATION
  7. NOVOLIN 70/30 [Concomitant]
     Indication: DIABETES MELLITUS
     Route: 058

REACTIONS (10)
  - URINARY TRACT INFECTION [None]
  - DRY SKIN [None]
  - PSORIASIS [None]
  - CHILLS [None]
  - MELAENA [None]
  - SKIN HYPERTROPHY [None]
  - DIARRHOEA [None]
  - NAUSEA [None]
  - VIRAL INFECTION [None]
  - CYSTITIS HAEMORRHAGIC [None]
